FAERS Safety Report 5554041-1 (Version None)
Quarter: 2007Q4

REPORT INFORMATION
  Report Type: 
  Country: None (occurrence: None)
  Receive Date: 20071130
  Receipt Date: 20070827
  Transmission Date: 20080405
  Serious: Yes (Hospitalization)
  Sender: FDA-Public Use
  Company Number: US200707005776

PATIENT
  Age: 58 Year
  Sex: Female
  Weight: 88.4 kg

DRUGS (29)
  1. BYETTA [Suspect]
     Indication: TYPE 2 DIABETES MELLITUS
     Dosage: 5 UG, 2/D, SUBCUTANEOUS, 10 UG, 2/D, SUBCUTANEOUS,
     Route: 058
     Dates: start: 20061015, end: 20061001
  2. BYETTA [Suspect]
     Indication: TYPE 2 DIABETES MELLITUS
     Dosage: 5 UG, 2/D, SUBCUTANEOUS, 10 UG, 2/D, SUBCUTANEOUS,
     Route: 058
     Dates: start: 20060306, end: 20061015
  3. BYETTA [Suspect]
     Indication: TYPE 2 DIABETES MELLITUS
     Dosage: 5 UG, 2/D, SUBCUTANEOUS, 10 UG, 2/D, SUBCUTANEOUS,
     Route: 058
     Dates: start: 20061001, end: 20061201
  4. INSULIN HUMALOG MIX (INSULIN LISPRO, ISOPHANE INSULIN) [Concomitant]
  5. CYMBALTA [Concomitant]
  6. METFORMIN HCL [Concomitant]
  7. LISINOPRIL [Concomitant]
  8. PROTONIX (PROTONIX) [Concomitant]
  9. SPIRONOLACTONE [Concomitant]
  10. NEURONTIN [Concomitant]
  11. LIPITOR [Concomitant]
  12. XANAX [Concomitant]
  13. AMBIEN [Concomitant]
  14. ASPIRIN [Concomitant]
  15. MULTI-VIT (VITAMINS NOS) [Concomitant]
  16. CALTRATE (CALCIUM, VITAMIN D NOS) [Concomitant]
  17. PREDNISONE TAB [Concomitant]
  18. ACYCLOVIR [Concomitant]
  19. SOMA [Concomitant]
  20. TRIAZOLAM [Concomitant]
  21. PERCOCET [Concomitant]
  22. VOLTAREN [Concomitant]
  23. CITRACAL (CALCIUM CITRATE) [Concomitant]
  24. PREVACID [Concomitant]
  25. EFFEXOR XR [Concomitant]
  26. LAMICTAL [Concomitant]
  27. VISTARIL [Concomitant]
  28. ATIVAN [Concomitant]
  29. VIVELLE-DOT [Concomitant]

REACTIONS (7)
  - BLOOD GLUCOSE DECREASED [None]
  - DEHYDRATION [None]
  - DIARRHOEA [None]
  - HAIR GROWTH ABNORMAL [None]
  - NAUSEA [None]
  - NERVOUSNESS [None]
  - VOMITING [None]
